FAERS Safety Report 14468191 (Version 1)
Quarter: 2018Q1

REPORT INFORMATION
  Report Type: Spontaneous
  Country: US (occurrence: US)
  Receive Date: 20180131
  Receipt Date: 20180131
  Transmission Date: 20180509
  Serious: Yes (Life-Threatening, Hospitalization, Other)
  Sender: FDA-Public Use
  Company Number: US-VISTAPHARM, INC.-VER201801-000245

PATIENT
  Age: 42 Year
  Sex: Female

DRUGS (5)
  1. OXYCODONE [Suspect]
     Active Substance: OXYCODONE
     Indication: PRODUCT USED FOR UNKNOWN INDICATION
  2. ACEPROMAZINE [Suspect]
     Active Substance: ACEPROMAZINE
     Indication: PRODUCT USED FOR UNKNOWN INDICATION
  3. DICYCLOMINE [Suspect]
     Active Substance: DICYCLOMINE HYDROCHLORIDE
     Indication: PRODUCT USED FOR UNKNOWN INDICATION
  4. D-AMPHETAMINE [Suspect]
     Active Substance: DEXTROAMPHETAMINE
     Indication: PRODUCT USED FOR UNKNOWN INDICATION
  5. BUSPIRONE [Suspect]
     Active Substance: BUSPIRONE HYDROCHLORIDE
     Indication: PRODUCT USED FOR UNKNOWN INDICATION

REACTIONS (8)
  - Hypothermia [Recovering/Resolving]
  - Acute kidney injury [Recovered/Resolved]
  - Metabolic acidosis [Recovering/Resolving]
  - Rhabdomyolysis [Recovering/Resolving]
  - Overdose [Unknown]
  - Neuroleptic malignant syndrome [Recovering/Resolving]
  - Septic shock [Recovering/Resolving]
  - Muscle rigidity [Recovering/Resolving]
